FAERS Safety Report 5319310-9 (Version None)
Quarter: 2007Q2

REPORT INFORMATION
  Report Type: 
  Country: None (occurrence: None)
  Receive Date: 20070508
  Receipt Date: 20070430
  Transmission Date: 20071010
  Serious: Yes (Hospitalization)
  Sender: FDA-Public Use
  Company Number: US-ELI_LILLY_AND_COMPANY-US200704002679

PATIENT
  Sex: Male

DRUGS (10)
  1. LISINOPRIL [Concomitant]
  2. PLAVIX [Concomitant]
  3. METOPROLOL SUCCINATE [Concomitant]
  4. ZOCOR [Concomitant]
  5. BUMEX [Concomitant]
  6. ACTOS [Concomitant]
  7. HUMULIN /00646001/ [Concomitant]
  8. BYETTA [Suspect]
     Dosage: 5 UG, 2/D
     Route: 058
  9. BYETTA [Suspect]
     Dosage: 10 UG, 2/D
     Route: 058
     Dates: start: 20060101, end: 20070201
  10. BYETTA [Suspect]
     Dosage: 10 UG, 2/D
     Route: 058
     Dates: start: 20070101

REACTIONS (7)
  - BENIGN NEOPLASM OF THYROID GLAND [None]
  - BLOOD CALCIUM INCREASED [None]
  - DIARRHOEA [None]
  - DYSPEPSIA [None]
  - NAUSEA [None]
  - PARATHYROID TUMOUR BENIGN [None]
  - THROMBOSIS [None]
